FAERS Safety Report 24954751 (Version 1)
Quarter: 2025Q1

REPORT INFORMATION
  Report Type: Spontaneous
  Country: NL (occurrence: NL)
  Receive Date: 20250211
  Receipt Date: 20250211
  Transmission Date: 20250408
  Serious: Yes (Other)
  Sender: TEVA
  Company Number: None

PATIENT
  Age: 45 Year
  Sex: Female
  Weight: 64 kg

DRUGS (4)
  1. PANTOPRAZOLE [Suspect]
     Active Substance: PANTOPRAZOLE
     Indication: Prophylaxis
     Dosage: TAKE 1 PIECE ONCE A DAY WITH NAPROXEN, TABLET MSR, BRAND NAME NOT SPECIFIED
     Route: 048
     Dates: start: 20250111
  2. NAPROXEN [Suspect]
     Active Substance: NAPROXEN
     Indication: Procedural pain
     Dosage: BRAND NAME NOT SPECIFIED
     Route: 048
     Dates: start: 20250111, end: 20250113
  3. ACETAMINOPHEN [Suspect]
     Active Substance: ACETAMINOPHEN
     Indication: Procedural pain
     Dosage: BRAND NAME NOT SPECIFIED
     Route: 048
     Dates: start: 20250110, end: 20250113
  4. TRAMADOL [Suspect]
     Active Substance: TRAMADOL
     Indication: Product used for unknown indication
     Dosage: BRAND NAME NOT SPECIFIED
     Route: 048
     Dates: start: 20250111, end: 20250113

REACTIONS (1)
  - Anaphylactic reaction [Recovered/Resolved]
